FAERS Safety Report 7167008-7 (Version None)
Quarter: 2010Q4

REPORT INFORMATION
  Report Type: 
  Country: None (occurrence: None)
  Receive Date: 20101216
  Receipt Date: 20101210
  Transmission Date: 20110411
  Serious: Yes (Death)
  Sender: FDA-Public Use
  Company Number: A0899780A

PATIENT
  Sex: Female

DRUGS (1)
  1. TYKERB [Suspect]
     Dosage: 250MG UNKNOWN
     Route: 048

REACTIONS (2)
  - DEATH [None]
  - HOSPICE CARE [None]
